FAERS Safety Report 20631726 (Version 3)
Quarter: 2022Q2

REPORT INFORMATION
  Report Type: Spontaneous
  Country: CA (occurrence: CA)
  Receive Date: 20220324
  Receipt Date: 20220411
  Transmission Date: 20220721
  Serious: Yes (Hospitalization)
  Sender: FDA-Public Use
  Company Number: CA-ABBVIE-22K-028-4329615-00

PATIENT
  Sex: Male

DRUGS (1)
  1. ANDROGEL [Suspect]
     Active Substance: TESTOSTERONE
     Indication: Blood testosterone abnormal
     Route: 061
     Dates: end: 202202

REACTIONS (7)
  - COVID-19 [Unknown]
  - Blood testosterone decreased [Unknown]
  - Muscle atrophy [Unknown]
  - Weight decreased [Unknown]
  - Libido disorder [Unknown]
  - Affective disorder [Unknown]
  - Product availability issue [Unknown]

NARRATIVE: CASE EVENT DATE: 20220101
